FAERS Safety Report 13407147 (Version 5)
Quarter: 2020Q4

REPORT INFORMATION
  Report Type: Report from Study
  Country: None (occurrence: US)
  Receive Date: 20170405
  Receipt Date: 20201126
  Transmission Date: 20210113
  Serious: Yes (Other)
  Sender: FDA-Public Use
  Company Number: US-ABBVIE-17P-163-1924918-00

PATIENT
  Age: 61 Year
  Sex: Male

DRUGS (3)
  1. LUPRON [Suspect]
     Active Substance: LEUPROLIDE ACETATE
     Indication: PRODUCT USED FOR UNKNOWN INDICATION
     Route: 065
  2. XTANDI [Suspect]
     Active Substance: ENZALUTAMIDE
     Indication: PROSTATE CANCER METASTATIC
     Route: 065
     Dates: start: 201504
  3. XTANDI [Suspect]
     Active Substance: ENZALUTAMIDE
     Route: 048
     Dates: start: 2016

REACTIONS (19)
  - Feeling guilty [Unknown]
  - Nipple swelling [Recovered/Resolved]
  - Blood pressure increased [Unknown]
  - Blood testosterone decreased [Unknown]
  - Arthralgia [Unknown]
  - Osteonecrosis [Unknown]
  - Night sweats [Unknown]
  - Asthenia [Unknown]
  - Heart rate increased [Unknown]
  - Hormone level abnormal [Unknown]
  - Product physical issue [Unknown]
  - Fatigue [Unknown]
  - Myalgia [Unknown]
  - Product storage error [Unknown]
  - Apathy [Unknown]
  - Inappropriate schedule of product administration [Unknown]
  - Nipple pain [Recovered/Resolved]
  - Nipple pain [Recovered/Resolved]
  - Bone pain [Unknown]

NARRATIVE: CASE EVENT DATE: 201504
